FAERS Safety Report 5535468-0 (Version None)
Quarter: 2007Q4

REPORT INFORMATION
  Report Type: 
  Country: None (occurrence: None)
  Receive Date: 20071204
  Receipt Date: 20071204
  Transmission Date: 20080405
  Serious: Yes (Other)
  Sender: FDA-Public Use
  Company Number: None

PATIENT
  Sex: Female
  Weight: 58.9676 kg

DRUGS (3)
  1. PREGABALIN    50 MG   PFIZER [Suspect]
     Indication: MIGRAINE PROPHYLAXIS
     Dosage: 50 MG   THREE TIMES DAILY   PO
     Route: 048
     Dates: start: 20070201, end: 20070310
  2. FEXOFENADINE [Concomitant]
  3. RIZATRIPTAN -MAXALT- [Concomitant]

REACTIONS (3)
  - ERYTHEMA [None]
  - RASH MACULO-PAPULAR [None]
  - SKIN LESION [None]
